FAERS Safety Report 7230505 (Version 2)
Quarter: 2013Q4

REPORT INFORMATION
  Report Type: Spontaneous
  Country: US (occurrence: None)
  Receive Date: 20091208
  Receipt Date: 20131028
  Transmission Date: 20140711
  Serious: Yes (Other)
  Sender: FDA-Public Use
  Company Number: 2009S1008729

PATIENT
  Age: 72 Year
  Sex: Female
  Weight: 68.95 kg

DRUGS (4)
  1. FLEET PHOSPHO-SODA ORAL SALINE LAXATIVE, GINGER-LEMON FLAVOR (ORAL SOLUTION) [Suspect]
     Indication: COLONOSCOPY
     Dosage: 90 ML; PO
     Route: 048
     Dates: start: 20061210
  2. SYNTHROID (LEVOTHYROXINE SODIUM) (100 MICROGRAM) [Concomitant]
  3. TOPROL XL (METOPROLOL SUCCINATE) (50 MILLIGRAM) [Concomitant]
  4. HYDROCHLOROTHIAZIDE (HYDROCHLOROTHIAZIDE) (25 ,ILLIGRAM) [Concomitant]

REACTIONS (7)
  - Nausea [None]
  - Dyspepsia [None]
  - Dizziness [None]
  - Weight decreased [None]
  - Renal failure chronic [None]
  - Fatigue [None]
  - Hyperparathyroidism secondary [None]
